FAERS Safety Report 16481166 (Version 7)
Quarter: 2020Q1

REPORT INFORMATION
  Report Type: Spontaneous
  Country: JP (occurrence: JP)
  Receive Date: 20190626
  Receipt Date: 20200106
  Transmission Date: 20200409
  Serious: Yes (Hospitalization)
  Sender: FDA-Public Use
  Company Number: PHJP2019JP007377

PATIENT
  Sex: Female

DRUGS (4)
  1. ILARIS [Suspect]
     Active Substance: CANAKINUMAB
     Indication: STILL^S DISEASE
     Dosage: 100 MG
     Route: 058
     Dates: start: 201903, end: 20190704
  2. ILARIS [Suspect]
     Active Substance: CANAKINUMAB
     Dosage: 110 MG
     Route: 058
     Dates: start: 20190801, end: 20190829
  3. PROGRAF [Concomitant]
     Active Substance: TACROLIMUS
     Indication: PRODUCT USED FOR UNKNOWN INDICATION
     Dosage: UNK
     Route: 048
     Dates: start: 201211, end: 201908
  4. METHOTREXATE. [Concomitant]
     Active Substance: METHOTREXATE
     Indication: PRODUCT USED FOR UNKNOWN INDICATION
     Dosage: UNK
     Route: 048

REACTIONS (3)
  - Haemophagocytic lymphohistiocytosis [Recovered/Resolved]
  - Haemophagocytic lymphohistiocytosis [Recovered/Resolved]
  - Lymphadenopathy [Unknown]

NARRATIVE: CASE EVENT DATE: 20190418
